FAERS Safety Report 6170552-2 (Version None)
Quarter: 2009Q2

REPORT INFORMATION
  Report Type: 
  Country: None (occurrence: None)
  Receive Date: 20090428
  Receipt Date: 20090416
  Transmission Date: 20091009
  Serious: Yes (Hospitalization)
  Sender: FDA-Public Use
  Company Number: US-ELI_LILLY_AND_COMPANY-US200802001997

PATIENT
  Sex: Female

DRUGS (10)
  1. FORTEO [Suspect]
     Indication: OSTEOPOROSIS
     Dosage: 20 UG, DAILY (1/D)
     Dates: start: 20071001
  2. FORTEO [Suspect]
     Dosage: 20 UG, DAILY (1/D)
  3. LASIX [Concomitant]
  4. NEURONTIN [Concomitant]
  5. NORTRIPTYLINE HCL [Concomitant]
  6. CENTRUM SILVER [Concomitant]
  7. CALCIUM COMPLETE [Concomitant]
  8. VITAMIN D3 [Concomitant]
  9. LIPITOR [Concomitant]
  10. POTASSIUM CHLORIDE [Concomitant]

REACTIONS (5)
  - ADJUSTMENT DISORDER [None]
  - ARTHRALGIA [None]
  - BLOOD CHOLESTEROL INCREASED [None]
  - CELLULITIS [None]
  - CLOSTRIDIAL INFECTION [None]
